FAERS Safety Report 8090746-9 (Version None)
Quarter: 2012Q1

REPORT INFORMATION
  Report Type: 
  Country: None (occurrence: None)
  Receive Date: 20120124
  Receipt Date: 20120116
  Transmission Date: 20120608
  Serious: Yes (Other)
  Sender: FDA-Public Use
  Company Number: AUR-APL-2011-05480

PATIENT
  Age: 11 Year
  Sex: Female

DRUGS (1)
  1. CEFTRIAXONE [Suspect]
     Indication: LYME DISEASE
     Dosage: INTRAVENOUS
     Route: 042

REACTIONS (15)
  - PYREXIA [None]
  - DIARRHOEA [None]
  - ANAEMIA HAEMOLYTIC AUTOIMMUNE [None]
  - CONDITION AGGRAVATED [None]
  - DECREASED APPETITE [None]
  - RENAL TUBULAR NECROSIS [None]
  - CHILLS [None]
  - ARTHRALGIA [None]
  - ABDOMINAL PAIN [None]
  - GASTROENTERITIS VIRAL [None]
  - DEHYDRATION [None]
  - RENAL FAILURE [None]
  - VOMITING [None]
  - ABDOMINAL TENDERNESS [None]
  - HAEMODIALYSIS [None]
